FAERS Safety Report 9110064 (Version 1)
Quarter: 2013Q1

REPORT INFORMATION
  Report Type: Report from Study
  Country: CA (occurrence: CA)
  Receive Date: 20130222
  Receipt Date: 20130222
  Transmission Date: 20140127
  Serious: Yes (Other)
  Sender: FDA-Public Use
  Company Number: CA-JNJFOC-20130207907

PATIENT
  Sex: Female

DRUGS (3)
  1. REMICADE [Suspect]
     Indication: CROHN^S DISEASE
     Route: 042
     Dates: start: 20120910, end: 20130213
  2. IMURAN [Concomitant]
     Dosage: END DATE CONFLICTINGLY REPORTED AS 01-AUG-2013
     Route: 048
     Dates: start: 20120801, end: 2013
  3. SULFASALAZINE [Concomitant]
     Dosage: 2 TABS
     Route: 048

REACTIONS (1)
  - Fistula [Not Recovered/Not Resolved]
